FAERS Safety Report 16056765 (Version 1)
Quarter: 2019Q2

REPORT INFORMATION
  Report Type: Spontaneous
  Country: US (occurrence: US)
  Receive Date: 20190310
  Receipt Date: 20190310
  Transmission Date: 20190711
  Serious: Yes (Disabling)
  Sender: FDA-Public Use
  Company Number: None

PATIENT
  Age: 66 Year
  Sex: Female
  Weight: 75.15 kg

DRUGS (1)
  1. IC AMLODIPINE BESYLATE 10MG [Suspect]
     Active Substance: AMLODIPINE BESYLATE
     Indication: HYPERTENSION
     Dosage: ?          QUANTITY:90 TABLET(S);?
     Route: 048
     Dates: start: 20190205, end: 20190215

REACTIONS (3)
  - Drug ineffective [None]
  - Headache [None]
  - Product substitution issue [None]

NARRATIVE: CASE EVENT DATE: 20190205
